FAERS Safety Report 7966988-7 (Version None)
Quarter: 2011Q4

REPORT INFORMATION
  Report Type: 
  Country: None (occurrence: None)
  Receive Date: 20111209
  Receipt Date: 20111129
  Transmission Date: 20120403
  Serious: Yes (Hospitalization)
  Sender: FDA-Public Use
  Company Number: US-JNJFOC-20111200391

PATIENT
  Sex: Female
  Weight: 63.05 kg

DRUGS (8)
  1. REMICADE [Suspect]
     Indication: RHEUMATOID ARTHRITIS
     Route: 042
     Dates: end: 20110916
  2. NORVASC [Concomitant]
     Indication: HYPERTENSION
     Route: 048
  3. FOLIC ACID [Concomitant]
     Indication: RHEUMATOID ARTHRITIS
     Route: 048
  4. TENOLOL [Concomitant]
     Indication: HYPERTENSION
     Route: 048
  5. METHOTREXATE [Concomitant]
     Indication: RHEUMATOID ARTHRITIS
     Route: 048
  6. VYTORIN [Concomitant]
     Indication: BLOOD CHOLESTEROL
     Route: 048
     Dates: start: 20090101
  7. REMICADE [Suspect]
     Route: 042
     Dates: start: 20111128
  8. LISINOPRIL [Concomitant]
     Indication: HYPERTENSION
     Route: 048

REACTIONS (3)
  - GAIT DISTURBANCE [None]
  - OSTEOARTHRITIS [None]
  - DERMATITIS CONTACT [None]
